FAERS Safety Report 11700299 (Version 2)
Quarter: 2015Q4

REPORT INFORMATION
  Report Type: Spontaneous
  Country: US (occurrence: US)
  Receive Date: 20151105
  Receipt Date: 20151231
  Transmission Date: 20160304
  Serious: No
  Sender: FDA-Public Use
  Company Number: US-PFIZER INC-2015373693

PATIENT
  Age: 73 Year
  Sex: Female
  Weight: 77 kg

DRUGS (12)
  1. XELJANZ [Suspect]
     Active Substance: TOFACITINIB CITRATE
     Indication: RHEUMATOID ARTHRITIS
     Dosage: 5 MG, 2X/DAY
     Route: 048
     Dates: start: 201509
  2. VITAMIN C [Concomitant]
     Active Substance: ASCORBIC ACID
     Dosage: UNK
  3. VITAMIN D [Concomitant]
     Active Substance: CHOLECALCIFEROL
     Dosage: UNK
  4. LEVOTHYROXINE. [Concomitant]
     Active Substance: LEVOTHYROXINE
     Indication: THYROID DISORDER
     Dosage: 75 MG, 1X/DAY
  5. METOPROLOL [Concomitant]
     Active Substance: METOPROLOL
     Indication: HYPERTENSION
     Dosage: UNK, 2X/DAY
  6. OCUVITE [Concomitant]
     Active Substance: VITAMINS
     Dosage: UNK
  7. FLONASE [Concomitant]
     Active Substance: FLUTICASONE PROPIONATE
     Dosage: UNK
  8. FOLIC ACID. [Concomitant]
     Active Substance: FOLIC ACID
     Indication: ABDOMINAL DISCOMFORT
     Dosage: UNK, 1X/DAY
  9. BUPROPION. [Concomitant]
     Active Substance: BUPROPION
     Indication: DEPRESSION
     Dosage: UNK, 1X/DAY
  10. PLAQUINOL [Concomitant]
     Active Substance: HYDROXYCHLOROQUINE SULFATE
     Indication: ARTHRALGIA
     Dosage: UNK, 2X/DAY
  11. TRIAMTERENE. [Concomitant]
     Active Substance: TRIAMTERENE
     Dosage: UNK, 1X/DAY
  12. FISH OIL [Concomitant]
     Active Substance: FISH OIL
     Dosage: UNK

REACTIONS (3)
  - Bronchitis [Unknown]
  - Cough [Not Recovered/Not Resolved]
  - Abdominal discomfort [Recovering/Resolving]

NARRATIVE: CASE EVENT DATE: 201510
